FAERS Safety Report 10697691 (Version 4)
Quarter: 2015Q1

REPORT INFORMATION
  Report Type: Spontaneous
  Country: FR (occurrence: FR)
  Receive Date: 20150108
  Receipt Date: 20150218
  Transmission Date: 20150721
  Serious: Yes (Hospitalization, Other)
  Sender: FDA-Public Use
  Company Number: FR-ASTRAZENECA-2015SE00467

PATIENT
  Age: 304 Month
  Sex: Female
  Weight: 74 kg

DRUGS (10)
  1. CICLOSPORIN [Suspect]
     Active Substance: CYCLOSPORINE
     Indication: APLASTIC ANAEMIA
     Dosage: 5 MG/KG/DAY
     Route: 042
     Dates: start: 20140812
  2. NIVESTIM [Suspect]
     Active Substance: FILGRASTIM
     Route: 065
     Dates: end: 20140904
  3. POLARAMINE [Concomitant]
     Active Substance: DEXCHLORPHENIRAMINE MALEATE
     Indication: PREMEDICATION
     Dosage: 1 DF VIAL
  4. INEXIUM [Suspect]
     Active Substance: ESOMEPRAZOLE
     Indication: ABDOMINAL PAIN UPPER
     Route: 048
     Dates: start: 201408, end: 20140825
  5. CICLOSPORIN [Suspect]
     Active Substance: CYCLOSPORINE
     Indication: BONE MARROW FAILURE
     Dosage: 5 MG/KG/DAY
     Route: 042
     Dates: start: 20140812
  6. SOLU-MEDROL [Suspect]
     Active Substance: METHYLPREDNISOLONE SODIUM SUCCINATE
     Indication: APLASTIC ANAEMIA
     Route: 065
     Dates: start: 20140812, end: 20140815
  7. PARACETAMOL [Concomitant]
     Active Substance: ACETAMINOPHEN
     Indication: PREMEDICATION
  8. ATGAM [Suspect]
     Active Substance: EQUINE THYMOCYTE IMMUNE GLOBULIN
     Indication: BONE MARROW FAILURE
     Route: 042
     Dates: start: 20140812, end: 20140815
  9. SOLU-MEDROL [Suspect]
     Active Substance: METHYLPREDNISOLONE SODIUM SUCCINATE
     Indication: PREMEDICATION
     Route: 065
     Dates: start: 20140812, end: 20140815
  10. CICLOSPORIN [Suspect]
     Active Substance: CYCLOSPORINE
     Indication: PREMEDICATION
     Dosage: 5 MG/KG/DAY
     Route: 042
     Dates: start: 20140812

REACTIONS (13)
  - Rash maculo-papular [Unknown]
  - Septic shock [Recovered/Resolved]
  - Sepsis [Recovering/Resolving]
  - Acute kidney injury [Recovered/Resolved]
  - Capillary leak syndrome [Recovering/Resolving]
  - Pancytopenia [Unknown]
  - Serum sickness [Recovering/Resolving]
  - Cardiac failure congestive [Recovered/Resolved]
  - Diabetes mellitus [Unknown]
  - Oral fungal infection [Unknown]
  - Abdominal pain upper [Recovering/Resolving]
  - Pyrexia [Recovered/Resolved]
  - Stomatitis [Unknown]

NARRATIVE: CASE EVENT DATE: 201408
